FAERS Safety Report 8090866-9 (Version None)
Quarter: 2012Q1

REPORT INFORMATION
  Report Type: 
  Country: None (occurrence: None)
  Receive Date: 20120131
  Receipt Date: 20120116
  Transmission Date: 20120608
  Serious: Yes (Hospitalization)
  Sender: FDA-Public Use
  Company Number: US-CELGENEUS-163-21880-11093099

PATIENT
  Age: 61 Year
  Sex: Female
  Weight: 146.64 kg

DRUGS (41)
  1. RITUXAN [Concomitant]
     Route: 065
     Dates: start: 20110101
  2. DECADRON [Concomitant]
     Route: 065
     Dates: start: 20110101
  3. LASIX [Concomitant]
     Dosage: 40 MILLIGRAM
     Route: 048
  4. METFFORMIN HYDROCHLORIDE [Concomitant]
     Dosage: 500 MILLIGRAM
     Route: 048
  5. CALCIUM CARBONATE [Concomitant]
     Dosage: 1000 MILLIGRAM
     Route: 048
  6. HUMULIN R [Concomitant]
     Dosage: 2-25 UNITS
     Route: 058
  7. NASACORT [Concomitant]
     Dosage: 55 MICROGRAM
     Route: 045
  8. REGULAR INSULIN [Concomitant]
     Route: 058
  9. CATAPRES [Concomitant]
     Dosage: .2 MILLIGRAM
     Route: 048
  10. FOLIC ACID [Concomitant]
     Dosage: 1 MILLIGRAM
     Route: 048
  11. CIPROFLOXACIN [Concomitant]
     Dosage: 500 MILLIGRAM
     Route: 048
  12. NEUPOGEN [Concomitant]
     Route: 058
  13. NPH INSULIN [Concomitant]
     Route: 058
  14. FEXOFENADINE [Concomitant]
     Dosage: 180 MILLIGRAM
     Route: 048
  15. LISINOPRIL [Concomitant]
     Dosage: 20 MILLIGRAM
     Route: 048
  16. POTASSIUM [Concomitant]
     Route: 041
  17. SINGULAIR [Concomitant]
     Dosage: 10 MILLIGRAM
     Route: 048
  18. PANTOPRAZOLE [Concomitant]
     Dosage: 40 MILLIGRAM
     Route: 041
  19. ZOMETA [Concomitant]
     Dosage: 4 MILLIGRAM
     Route: 065
     Dates: start: 20100208
  20. OXYCODONE HCL AND ACETAMINOPHEN [Concomitant]
     Dosage: 5-500MG
     Route: 048
  21. ACETAMINOPHEN [Concomitant]
     Dosage: 625 MILLIGRAM
     Route: 048
     Dates: start: 20110727
  22. PROCARDIA [Concomitant]
     Dosage: 10 MILLIGRAM
     Route: 060
     Dates: start: 20110712
  23. NEUPOGEN [Concomitant]
     Route: 065
  24. ASTELIN [Concomitant]
     Dosage: 137 MILLIGRAM
     Route: 045
  25. CALCIUM +VITAMIN D [Concomitant]
     Dosage: 600-200MG
     Route: 048
  26. FLUTICASONE PROPIONATE [Concomitant]
     Route: 045
  27. BENADRYL [Concomitant]
     Dosage: 150 MILLIGRAM
     Route: 048
     Dates: start: 20110815
  28. CALCIUM CARBONATE [Concomitant]
     Dosage: 500-200MG
     Route: 048
  29. POTASSIUM [Concomitant]
     Dosage: 20 MILLIEQUIVALENTS
     Route: 048
  30. SOLU-MEDROL [Concomitant]
     Dosage: 125MG-80MG
     Route: 041
  31. PROCARDIA [Concomitant]
     Dosage: 10 MILLIGRAM
     Route: 048
     Dates: start: 20090116
  32. REVLIMID [Suspect]
     Indication: MULTIPLE MYELOMA
     Dosage: 10 MILLIGRAM
     Route: 048
     Dates: start: 20100720, end: 20110712
  33. GLUCOTROL XL [Concomitant]
     Dosage: 10 MILLIGRAM
     Route: 048
  34. NORVASC [Concomitant]
     Dosage: 10 MILLIGRAM
     Route: 048
  35. HYDROXYZINE HCL [Concomitant]
     Dosage: 25 MILLIGRAM
     Route: 048
  36. LORATADINE [Concomitant]
     Dosage: 10 MILLIGRAM
     Route: 048
  37. MAGNESIUM SULFATE [Concomitant]
     Dosage: 4 GRAM
     Route: 041
  38. BENADRYL [Concomitant]
     Dosage: 50 MILLIGRAM
     Route: 048
     Dates: start: 20110727
  39. VINCRISTINE [Concomitant]
     Dosage: 2 MILLIGRAM
     Route: 065
     Dates: start: 20110817
  40. FLU VACCINE [Concomitant]
     Dosage: .8 MILLIGRAM
     Route: 030
     Dates: start: 20100610
  41. PLASMAPHERESIS BLOOD-PACK SYSTEM INFUSION [Concomitant]

REACTIONS (1)
  - MYELODYSPLASTIC SYNDROME [None]
